FAERS Safety Report 7385123-X (Version None)
Quarter: 2011Q1

REPORT INFORMATION
  Report Type: 
  Country: None (occurrence: None)
  Receive Date: 20110330
  Receipt Date: 20110329
  Transmission Date: 20110831
  Serious: Yes (Death, Other)
  Sender: FDA-Public Use
  Company Number: US-AMGEN-USASP2011010696

PATIENT
  Sex: Female
  Weight: 88.889 kg

DRUGS (4)
  1. NPLATE [Suspect]
     Indication: IDIOPATHIC THROMBOCYTOPENIC PURPURA
     Dosage: 900 A?G, UNK
     Route: 058
     Dates: start: 20100622, end: 20101124
  2. ARANESP [Suspect]
  3. NEUPOGEN [Suspect]
  4. PROMACTA [Concomitant]

REACTIONS (3)
  - DRUG INEFFECTIVE [None]
  - PANCYTOPENIA [None]
  - DISEASE PROGRESSION [None]
